FAERS Safety Report 13050468 (Version 1)
Quarter: 2016Q4

REPORT INFORMATION
  Report Type: Not Available
  Country: IN (occurrence: IN)
  Receive Date: 20161221
  Receipt Date: 20161221
  Transmission Date: 20170207
  Serious: Yes (Other)
  Sender: FDA-Public Use
  Company Number: IN--2016-IN-000046

PATIENT
  Age: 14 Year
  Sex: Male

DRUGS (1)
  1. METRONIDAZOLE TABLETS USP (VIVIMED) [Suspect]
     Active Substance: METRONIDAZOLE
     Indication: ABDOMINAL PAIN

REACTIONS (1)
  - Toxic encephalopathy [Recovered/Resolved]
